FAERS Safety Report 8439356-1 (Version None)
Quarter: 2012Q2

REPORT INFORMATION
  Report Type: 
  Country: None (occurrence: None)
  Receive Date: 20120615
  Receipt Date: 20120612
  Transmission Date: 20120825
  Serious: Yes (Other)
  Sender: FDA-Public Use
  Company Number: PHEH2012US008867

PATIENT
  Sex: Female
  Weight: 62.09 kg

DRUGS (1)
  1. ZOMETA [Suspect]
     Dosage: 4 MG / 5 ML EVERY 4 WEEKS
     Route: 042
     Dates: start: 20110301, end: 20120501

REACTIONS (1)
  - UPPER LIMB FRACTURE [None]
